FAERS Safety Report 10073824 (Version 1)
Quarter: 2014Q2

REPORT INFORMATION
  Report Type: Spontaneous
  Country: US (occurrence: US)
  Receive Date: 20140411
  Receipt Date: 20140411
  Transmission Date: 20141212
  Serious: No
  Sender: FDA-Public Use
  Company Number: US-009507513-1404USA006801

PATIENT
  Age: 18 Year
  Sex: Female
  Weight: 54.8 kg

DRUGS (1)
  1. NUVARING [Suspect]
     Indication: CONTRACEPTION
     Dosage: 3 WEEKS IN, 1 WEEK OUT RING
     Route: 067
     Dates: start: 20140331, end: 20140407

REACTIONS (2)
  - Fungal infection [Unknown]
  - Discomfort [Unknown]
